FAERS Safety Report 6401091-9 (Version None)
Quarter: 2009Q4

REPORT INFORMATION
  Report Type: 
  Country: None (occurrence: None)
  Receive Date: 20091015
  Receipt Date: 20091012
  Transmission Date: 20100525
  Serious: Yes (Other)
  Sender: FDA-Public Use
  Company Number: US-TEVA-212085USA

PATIENT
  Sex: Female
  Weight: 79.45 kg

DRUGS (3)
  1. PLAN B [Suspect]
     Indication: POST COITAL CONTRACEPTION
     Route: 048
     Dates: start: 20090701, end: 20090701
  2. ZYVOX [Suspect]
     Indication: URINARY TRACT INFECTION
  3. KLONOPIN [Suspect]
     Indication: RESTLESS LEGS SYNDROME
     Route: 048
     Dates: start: 20070101

REACTIONS (2)
  - CONVULSION [None]
  - MENSTRUATION IRREGULAR [None]
